FAERS Safety Report 5429600-7 (Version None)
Quarter: 2007Q3

REPORT INFORMATION
  Report Type: 
  Country: None (occurrence: None)
  Receive Date: 20070829
  Receipt Date: 20070822
  Transmission Date: 20080115
  Serious: Yes (Other)
  Sender: FDA-Public Use
  Company Number: CA-ELI_LILLY_AND_COMPANY-CA200708005672

PATIENT
  Sex: Male

DRUGS (3)
  1. HUMALOG [Suspect]
     Indication: DIABETES MELLITUS
     Dosage: UNK, OTHER
     Route: 058
  2. GLUCAGON [Suspect]
     Indication: HYPOGLYCAEMIA
     Dosage: UNK, AS NEEDED
     Route: 058
  3. LEVEMIR [Concomitant]
     Indication: DIABETES MELLITUS
     Dosage: 7 U, 2/D
     Route: 058
     Dates: start: 20070701

REACTIONS (2)
  - BLOOD GLUCOSE INCREASED [None]
  - CONVULSION [None]
